FAERS Safety Report 22936159 (Version 2)
Quarter: 2023Q4

REPORT INFORMATION
  Report Type: Spontaneous
  Country: TR (occurrence: TR)
  Receive Date: 20230912
  Receipt Date: 20231109
  Transmission Date: 20240109
  Serious: Yes (Death, Life-Threatening, Hospitalization, Other)
  Sender: FDA-Public Use
  Company Number: TR-SA-2023SA274059

PATIENT
  Age: 3 Year
  Sex: Female
  Weight: 10 kg

DRUGS (20)
  1. ANTI-THYMOCYTE GLOBULIN (RABBIT) NOS [Suspect]
     Active Substance: LAPINE T-LYMPHOCYTE IMMUNE GLOBULIN
     Indication: Transplant rejection
     Dosage: ON 5TH DAY 1.5MG/KG 1TOTAL
  2. METHYLPREDNISOLONE [Suspect]
     Active Substance: METHYLPREDNISOLONE
     Indication: Immunosuppressant drug therapy
     Dosage: 10 MG/KG, QD(FIRST DAY)
  3. METHYLPREDNISOLONE [Suspect]
     Active Substance: METHYLPREDNISOLONE
     Dosage: 8 MG/KG, QD(ON 2ND DAY)
  4. METHYLPREDNISOLONE [Suspect]
     Active Substance: METHYLPREDNISOLONE
     Dosage: 6 MG/KG, QD(ON 3RD DAY)
  5. METHYLPREDNISOLONE [Suspect]
     Active Substance: METHYLPREDNISOLONE
     Dosage: 4 MG/KG, QD(ON 4TH DAY)
  6. METHYLPREDNISOLONE [Suspect]
     Active Substance: METHYLPREDNISOLONE
     Dosage: 2 MG/KG, QD(ON 5 TH DAY)
  7. METHYLPREDNISOLONE [Suspect]
     Active Substance: METHYLPREDNISOLONE
     Dosage: INCREASED BACK TO 10 MG/KG/DAY DUE TO REJECTION 10MG/KG QD
  8. METHYLPREDNISOLONE [Suspect]
     Active Substance: METHYLPREDNISOLONE
     Dosage: CONTINUED TO TAPER AFTERWARDS
  9. TACROLIMUS [Suspect]
     Active Substance: TACROLIMUS
     Indication: Immunosuppressant drug therapy
     Dosage: 0.05 MG/KG, QD
  10. TACROLIMUS [Suspect]
     Active Substance: TACROLIMUS
     Dosage: GRADUALLY INCREASED TO THE TARGET SERUM LEVEL
  11. BASILIXIMAB [Suspect]
     Active Substance: BASILIXIMAB
     Indication: Immunosuppressant drug therapy
     Dosage: 10 MG, TOTAL
  12. BASILIXIMAB [Suspect]
     Active Substance: BASILIXIMAB
     Indication: Hepatic enzyme increased
  13. PIPERACILLIN AND TAZOBACTAM [Concomitant]
     Active Substance: PIPERACILLIN SODIUM\TAZOBACTAM SODIUM
     Dosage: 300 MG/KG, QD
  14. TEICOPLANIN [Concomitant]
     Active Substance: TEICOPLANIN
     Indication: Antibiotic therapy
     Dosage: 30 MG/KG (FIRST DAY)
  15. TEICOPLANIN [Concomitant]
     Active Substance: TEICOPLANIN
     Dosage: 10 MG/KG, QD
  16. FLUCONAZOLE [Concomitant]
     Active Substance: FLUCONAZOLE
     Indication: Infection prophylaxis
     Dosage: 3 MG/KG, QD
  17. GANCICLOVIR [Concomitant]
     Active Substance: GANCICLOVIR
     Indication: Infection prophylaxis
     Dosage: 5 MG/KG, QD
  18. VALGANCICLOVIR [Concomitant]
     Active Substance: VALGANCICLOVIR
     Indication: Infection prophylaxis
     Dosage: UNK,ENTERAL
  19. THIAMINE [Concomitant]
     Active Substance: THIAMINE
     Dosage: 100 MG, QD
  20. ENOXAPARIN [Concomitant]
     Active Substance: ENOXAPARIN
     Indication: Prophylaxis
     Dosage: 1 MG/KG, QD

REACTIONS (9)
  - Sepsis [Fatal]
  - Disseminated mucormycosis [Fatal]
  - Gastrointestinal mucormycosis [Fatal]
  - Upper gastrointestinal haemorrhage [Fatal]
  - Haematoma [Fatal]
  - Abdominal distension [Fatal]
  - Gastrointestinal necrosis [Fatal]
  - Intestinal ischaemia [Fatal]
  - Thrombocytopenia [Unknown]
